FAERS Safety Report 16160156 (Version 4)
Quarter: 2020Q1

REPORT INFORMATION
  Report Type: Report from Study
  Country: US (occurrence: US)
  Receive Date: 20190404
  Receipt Date: 20200122
  Transmission Date: 20200409
  Serious: Yes (Death, Hospitalization, Other)
  Sender: FDA-Public Use
  Company Number: US-ACTELION-A-US2019-188540

PATIENT
  Age: 76 Year
  Sex: Male

DRUGS (22)
  1. COLACE [Concomitant]
     Active Substance: DOCUSATE SODIUM
  2. REVATIO [Concomitant]
     Active Substance: SILDENAFIL CITRATE
  3. VENTOLIN HFA [Concomitant]
     Active Substance: ALBUTEROL SULFATE
  4. LIPITOR [Concomitant]
     Active Substance: ATORVASTATIN CALCIUM
  5. CELEXA [Concomitant]
     Active Substance: CITALOPRAM HYDROBROMIDE
  6. GUAIFENESIN. [Concomitant]
     Active Substance: GUAIFENESIN
  7. SPIRIVA [Concomitant]
     Active Substance: TIOTROPIUM BROMIDE MONOHYDRATE
  8. LASIX [Concomitant]
     Active Substance: FUROSEMIDE
  9. WARFARIN [Concomitant]
     Active Substance: WARFARIN
  10. ADVAIR HFA [Concomitant]
     Active Substance: FLUTICASONE PROPIONATE\SALMETEROL XINAFOATE
  11. PREDNISONE. [Concomitant]
     Active Substance: PREDNISONE
  12. OPSUMIT [Suspect]
     Active Substance: MACITENTAN
     Indication: PULMONARY ARTERIAL HYPERTENSION
     Dosage: 10 MG, QD
     Route: 048
     Dates: start: 201803
  13. HYTRIN [Concomitant]
     Active Substance: TERAZOSIN HYDROCHLORIDE
  14. DIGOXIN. [Concomitant]
     Active Substance: DIGOXIN
  15. ASPIRIN. [Concomitant]
     Active Substance: ASPIRIN
  16. ALBUTEROL. [Concomitant]
     Active Substance: ALBUTEROL
  17. METOLAZONE. [Concomitant]
     Active Substance: METOLAZONE
  18. POTASSIUM CHLORIDE. [Concomitant]
     Active Substance: POTASSIUM CHLORIDE
  19. GABAPENTIN. [Concomitant]
     Active Substance: GABAPENTIN
  20. PEPCID [Concomitant]
     Active Substance: FAMOTIDINE
  21. SENNA [Concomitant]
     Active Substance: SENNA LEAF\SENNOSIDES\SENNOSIDES A AND B
  22. METOPROLOL. [Concomitant]
     Active Substance: METOPROLOL

REACTIONS (14)
  - Acute respiratory failure [Unknown]
  - Blood potassium decreased [Recovered/Resolved]
  - Transfusion [Unknown]
  - Blood potassium increased [Recovered/Resolved]
  - Device defective [Unknown]
  - Dyspnoea [Unknown]
  - Haemoglobin decreased [Recovering/Resolving]
  - Hypokalaemia [Recovered/Resolved]
  - Hypoxia [Recovered/Resolved]
  - Chronic obstructive pulmonary disease [Unknown]
  - Urinary tract infection [Unknown]
  - Colonoscopy [Unknown]
  - Faeces discoloured [Unknown]
  - Death [Fatal]

NARRATIVE: CASE EVENT DATE: 20190222
